FAERS Safety Report 7814458-9 (Version None)
Quarter: 2011Q4

REPORT INFORMATION
  Report Type: 
  Country: None (occurrence: None)
  Receive Date: 20111014
  Receipt Date: 20111011
  Transmission Date: 20120403
  Serious: Yes (Other)
  Sender: FDA-Public Use
  Company Number: BE-ROXANE LABORATORIES, INC.-2011-RO-01447RO

PATIENT
  Age: 76 Year
  Sex: Male

DRUGS (3)
  1. PROPRANOLOL [Suspect]
     Route: 048
  2. BISOPROLOL [Suspect]
     Route: 048
  3. DILTIAZEM HCL [Suspect]
     Route: 048

REACTIONS (3)
  - TOXICITY TO VARIOUS AGENTS [None]
  - HYPOTENSION [None]
  - BRADYCARDIA [None]
